FAERS Safety Report 16589762 (Version 1)
Quarter: 2019Q3

REPORT INFORMATION
  Report Type: Spontaneous
  Country: US (occurrence: US)
  Receive Date: 20190718
  Receipt Date: 20190718
  Transmission Date: 20191004
  Serious: No
  Sender: FDA-Public Use
  Company Number: US-SWEDISH ORPHAN BIOVITRUM-2019US0851

PATIENT
  Sex: Female

DRUGS (10)
  1. NYSTATIN. [Concomitant]
     Active Substance: NYSTATIN
  2. BACTROBAN [Concomitant]
     Active Substance: MUPIROCIN\MUPIROCIN CALCIUM
  3. KINERET [Suspect]
     Active Substance: ANAKINRA
     Indication: RHEUMATOID ARTHRITIS
  4. ENBREL [Concomitant]
     Active Substance: ETANERCEPT
  5. PREDNISONE. [Concomitant]
     Active Substance: PREDNISONE
  6. FLAGYL [Concomitant]
     Active Substance: METRONIDAZOLE\METRONIDAZOLE HYDROCHLORIDE
  7. DOXYCYCLINE. [Concomitant]
     Active Substance: DOXYCYCLINE
  8. DIFICID [Concomitant]
     Active Substance: FIDAXOMICIN
  9. ILARIS [Concomitant]
     Active Substance: CANAKINUMAB
  10. VANCOMYCIN [Concomitant]
     Active Substance: VANCOMYCIN

REACTIONS (1)
  - Disease progression [Not Recovered/Not Resolved]
